FAERS Safety Report 10213880 (Version 1)
Quarter: 2014Q2

REPORT INFORMATION
  Report Type: Spontaneous
  Country: IT (occurrence: None)
  Receive Date: 20140529
  Receipt Date: 20140529
  Transmission Date: 20141212
  Serious: Yes (Hospitalization)
  Sender: FDA-Public Use
  Company Number: IT-014846

PATIENT
  Age: 57 Year
  Sex: Male

DRUGS (10)
  1. SOMATROPIN [Suspect]
     Indication: BLOOD GROWTH HORMONE DECREASED
     Route: 058
     Dates: start: 20030301, end: 20140127
  2. TESTOSTERONE ENANTHATE [Suspect]
     Indication: SECONDARY HYPOGONADISM
     Dosage: 250 MG, CYCLICAL INTRAMUSCULAR
     Dates: start: 20030101, end: 20140127
  3. CORTISONE ACETATE [Concomitant]
  4. CARDIRENE [Concomitant]
  5. KEPPRA [Concomitant]
  6. LEVOTHYROXINE SODIUM [Concomitant]
  7. DESMOPRESSIN [Concomitant]
  8. CHOLECALCIFEROL [Concomitant]
  9. CITALOPRAM [Concomitant]
  10. TRIATEC [Concomitant]

REACTIONS (1)
  - Prostate cancer [None]
